FAERS Safety Report 10200914 (Version 1)
Quarter: 2014Q2

REPORT INFORMATION
  Report Type: Spontaneous
  Country: FR (occurrence: FR)
  Receive Date: 20140528
  Receipt Date: 20140528
  Transmission Date: 20141212
  Serious: Yes (Hospitalization)
  Sender: FDA-Public Use
  Company Number: FR-B.I. PHARMACEUTICALS,INC./RIDGEFIELD-2014-BI-22367FF

PATIENT
  Age: 79 Year
  Sex: Female

DRUGS (6)
  1. PRADAXA [Suspect]
     Indication: ATRIAL FIBRILLATION
     Dosage: 220 MG
     Route: 048
     Dates: end: 20140422
  2. KARDEGIC [Suspect]
     Indication: PRODUCT USED FOR UNKNOWN INDICATION
     Dosage: 75 MG
     Route: 048
     Dates: end: 20140422
  3. CORDARONE [Concomitant]
     Route: 048
  4. PRAVASTATINE SODIUM [Concomitant]
     Dosage: 20 MG
     Route: 048
  5. INEXIUM [Concomitant]
     Dosage: 20 MCG
     Route: 048
  6. BISOPROLOL [Concomitant]
     Dosage: 1.25 MG
     Route: 048

REACTIONS (1)
  - Rectal haemorrhage [Recovered/Resolved]
